FAERS Safety Report 21525044 (Version 1)
Quarter: 2022Q4

REPORT INFORMATION
  Report Type: Spontaneous
  Country: NL (occurrence: NL)
  Receive Date: 20221030
  Receipt Date: 20221030
  Transmission Date: 20230112
  Serious: Yes (Other)
  Sender: FDA-Public Use
  Company Number: None

PATIENT
  Sex: Male
  Weight: 90 kg

DRUGS (7)
  1. METHOTREXATE [Suspect]
     Active Substance: METHOTREXATE
     Indication: Psoriatic arthropathy
     Dosage: 1X/WEEK 25MG SUBCUTANEOUSLY, METHOTREXATE INJVLST 25MG/ML / BRAND NAME NOT SPECIFIED, DURATION : 567
     Route: 058
     Dates: start: 20210112, end: 20220802
  2. ROSUVASTATIN [Concomitant]
     Active Substance: ROSUVASTATIN
     Indication: Product used for unknown indication
     Dosage: ROSUVASTATINE TABLET  5MG / BRAND NAME NOT SPECIFIED, THERAPY START DATE AND END DATE : ASKU
  3. ASPIRIN [Concomitant]
     Active Substance: ASPIRIN
     Indication: Product used for unknown indication
     Dosage: ACETYLSALICYLZUUR TABLET  80MG / BRAND NAME NOT SPECIFIED, THERAPY START DATE AND END DATE : ASKU
  4. DILTIAZEM [Concomitant]
     Active Substance: DILTIAZEM
     Indication: Product used for unknown indication
     Dosage: MODIFIED-RELEASE CAPSULE,DILTIAZEM CAPSULE MGA 200MG / BRAND NAME NOT SPECIFIED, THERAPY START DATE
  5. CALCIUMCARB/COLECAL [Concomitant]
     Indication: Product used for unknown indication
     Dosage: SACHET (EFFERVESCENT GRANULES), 1.25 G (GRAMS)/880 UNITS, CALCIUM CARB/COLECAL ANCIDENTAL 1.25G/880I
  6. PANTOPRAZOLE SODIUM [Concomitant]
     Active Substance: PANTOPRAZOLE SODIUM
     Indication: Product used for unknown indication
     Dosage: PANTOPRAZOL TABLET MSR 40MG / BRAND NAME NOT SPECIFIED, THERAPY START DATE AND END DATE : ASKU
  7. ALENDRONIC ACID [Concomitant]
     Active Substance: ALENDRONIC ACID
     Indication: Product used for unknown indication
     Dosage: ALENDRONINEZUUR TABLET 70MG / BRAND NAME NOT SPECIFIED, THERAPY START DATE AND END DATE : ASKU

REACTIONS (1)
  - Cerebellar syndrome [Recovered/Resolved]
